FAERS Safety Report 10203317 (Version 3)
Quarter: 2014Q3

REPORT INFORMATION
  Report Type: Spontaneous
  Country: FR (occurrence: FR)
  Receive Date: 20140529
  Receipt Date: 20140926
  Transmission Date: 20150326
  Serious: Yes (Other)
  Sender: FDA-Public Use
  Company Number: PHHY2014FR061471

PATIENT
  Age: 73 Year
  Sex: Female
  Weight: 74 kg

DRUGS (16)
  1. FEMARA [Suspect]
     Active Substance: LETROZOLE
     Dosage: UNK UKN, UNK
  2. FEMARA [Suspect]
     Active Substance: LETROZOLE
     Indication: BREAST CANCER
     Dosage: 1 DF, QD
     Route: 048
     Dates: start: 20130623
  3. IPERTEN [Concomitant]
     Active Substance: MANIDIPINE
     Indication: HYPERTENSION
     Dosage: 10 MG, QD
     Route: 048
  4. OMACOR [Concomitant]
     Active Substance: OMEGA-3-ACID ETHYL ESTERS
     Indication: HYPERTRIGLYCERIDAEMIA
     Dosage: UNK UKN, UNK
  5. AERIUS [Concomitant]
     Active Substance: DESLORATADINE
     Indication: HYPERSENSITIVITY
     Dosage: 1 DF, QD
  6. PLAVIX [Concomitant]
     Active Substance: CLOPIDOGREL BISULFATE
     Indication: MYOCARDIAL INFARCTION
     Dosage: UNK UKN, UNK
     Dates: start: 1996
  7. APROVEL [Concomitant]
     Active Substance: IRBESARTAN
     Dosage: 150 MG, QD
     Route: 048
     Dates: start: 2012
  8. APROVEL [Concomitant]
     Active Substance: IRBESARTAN
     Indication: HYPERTENSION
     Dosage: 150 MG, BID (0.5XDF, BID)
  9. KARDEGIC [Concomitant]
     Active Substance: ASPIRIN LYSINE
     Dosage: 75 MG, QD
  10. LEXOMIL [Concomitant]
     Active Substance: BROMAZEPAM
     Indication: ANXIETY
     Dosage: 0.5 DF, QD
  11. ELISOR [Concomitant]
     Active Substance: PRAVASTATIN SODIUM
     Indication: HYPERCHOLESTEROLAEMIA
     Dosage: UNK UKN, UNK
  12. APROVEL [Concomitant]
     Active Substance: IRBESARTAN
     Dosage: UNK UKN, UNK
  13. OMACOR [Concomitant]
     Active Substance: OMEGA-3-ACID ETHYL ESTERS
     Dosage: 1 DF, QD
     Dates: start: 2013
  14. ELISOR [Concomitant]
     Active Substance: PRAVASTATIN SODIUM
     Dosage: 1 DF, QD
     Route: 048
     Dates: start: 2012
  15. VASTAREL [Concomitant]
     Active Substance: TRIMETAZIDINE DIHYDROCHLORIDE
     Indication: ANGINA PECTORIS
     Dosage: 35 MG, BID
     Dates: start: 2010
  16. INEXIUM//ESOMEPRAZOLE MAGNESIUM [Concomitant]
     Active Substance: ESOMEPRAZOLE MAGNESIUM
     Indication: GASTROOESOPHAGEAL REFLUX DISEASE
     Dosage: 40 MG, QD

REACTIONS (29)
  - Back pain [Not Recovered/Not Resolved]
  - Retinal haemorrhage [Recovering/Resolving]
  - Ocular hyperaemia [Unknown]
  - Rhinitis [Unknown]
  - Hypertension [Not Recovered/Not Resolved]
  - Retinal aneurysm [Recovering/Resolving]
  - Photopsia [Unknown]
  - Hypertriglyceridaemia [Unknown]
  - Colour blindness [Unknown]
  - Retinal exudates [Unknown]
  - Hot flush [Not Recovered/Not Resolved]
  - Retinal oedema [Unknown]
  - Vitreous floaters [Unknown]
  - Photophobia [Unknown]
  - Arthralgia [Not Recovered/Not Resolved]
  - Retinal tear [Unknown]
  - Visual field defect [Unknown]
  - Headache [Not Recovered/Not Resolved]
  - Diarrhoea [Not Recovered/Not Resolved]
  - Vision blurred [Unknown]
  - Visual acuity tests abnormal [Unknown]
  - Eye irritation [Unknown]
  - Heart rate increased [Not Recovered/Not Resolved]
  - Eye disorder [Not Recovered/Not Resolved]
  - Lacrimation increased [Unknown]
  - Eye pruritus [Unknown]
  - Constipation [Not Recovered/Not Resolved]
  - Hypercholesterolaemia [Not Recovered/Not Resolved]
  - Weight increased [Not Recovered/Not Resolved]

NARRATIVE: CASE EVENT DATE: 201402
